FAERS Safety Report 10034782 (Version 3)
Quarter: 2014Q2

REPORT INFORMATION
  Report Type: Report from Study
  Country: JP (occurrence: JP)
  Receive Date: 20140325
  Receipt Date: 20140428
  Transmission Date: 20141212
  Serious: Yes (Death, Life-Threatening)
  Sender: FDA-Public Use
  Company Number: JP-SA-THYM-1002950

PATIENT
  Age: 7 Year
  Sex: Male
  Weight: 19 kg

DRUGS (17)
  1. THYMOGLOBULINE [Suspect]
     Indication: BONE MARROW CONDITIONING REGIMEN
     Dosage: 2.5 MG, QD
     Route: 042
     Dates: start: 20111121, end: 20111122
  2. GLYCEOL [Concomitant]
     Indication: PROPHYLAXIS
     Route: 065
     Dates: start: 20111121, end: 20111123
  3. DECADRON [Concomitant]
     Indication: PROPHYLAXIS
     Route: 065
     Dates: start: 20111121, end: 20111123
  4. SOLUMEDROL [Concomitant]
     Indication: PROPHYLAXIS
     Route: 065
     Dates: start: 20111121, end: 20111122
  5. CHLORTRIMETON [Concomitant]
     Indication: PROPHYLAXIS
     Route: 065
     Dates: start: 20111121, end: 20111122
  6. GRANISETRON [Concomitant]
     Indication: PROPHYLAXIS OF NAUSEA AND VOMITING
     Route: 065
     Dates: start: 20111119, end: 20111123
  7. FIRSTCIN [Concomitant]
     Indication: NEUTROPENIA
     Route: 065
     Dates: start: 20111119, end: 20111202
  8. TEICOPLANIN [Concomitant]
     Indication: NEUTROPENIA
     Route: 065
     Dates: start: 20110904, end: 20111226
  9. FUNGUARD [Concomitant]
     Indication: NEUTROPENIA
     Route: 065
     Dates: start: 20110823, end: 20120129
  10. URSO [Concomitant]
     Indication: PROPHYLAXIS
     Route: 065
     Dates: start: 20111119
  11. ORGARAN [Concomitant]
     Indication: PROPHYLAXIS
     Route: 065
     Dates: start: 20111119, end: 20111224
  12. BAKTAR [Concomitant]
     Indication: ANTIFUNGAL PROPHYLAXIS
     Route: 065
     Dates: start: 20110131, end: 20120211
  13. ZOVIRAX [Concomitant]
     Indication: INFECTION PROPHYLAXIS
     Route: 065
     Dates: start: 20111119, end: 20120211
  14. PROGRAF [Concomitant]
     Indication: PROPHYLAXIS AGAINST GRAFT VERSUS HOST DISEASE
     Route: 065
     Dates: start: 20111123, end: 20120130
  15. SOLUMEDROL [Concomitant]
     Indication: PROPHYLAXIS AGAINST GRAFT VERSUS HOST DISEASE
     Route: 065
     Dates: start: 20111125, end: 20120127
  16. ENDOXAN [Concomitant]
     Indication: BONE MARROW CONDITIONING REGIMEN
     Route: 065
     Dates: start: 20111119, end: 20111120
  17. VENILON [Concomitant]
     Indication: HYPOGAMMAGLOBULINAEMIA
     Route: 065
     Dates: start: 20111129, end: 20120121

REACTIONS (3)
  - Acute myeloid leukaemia recurrent [Not Recovered/Not Resolved]
  - Pseudomonal sepsis [Fatal]
  - Pyrexia [Recovering/Resolving]
